FAERS Safety Report 18259333 (Version 1)
Quarter: 2020Q3

REPORT INFORMATION
  Report Type: Spontaneous
  Country: CN (occurrence: CN)
  Receive Date: 20200911
  Receipt Date: 20200911
  Transmission Date: 20201103
  Serious: Yes (Other)
  Sender: FDA-Public Use
  Company Number: CN-ALLERGAN-2034310US

PATIENT
  Sex: Female

DRUGS (1)
  1. CITALOPRAM HYDROBROMIDE ? BP [Suspect]
     Active Substance: CITALOPRAM HYDROBROMIDE
     Indication: DEPRESSION
     Dosage: 10 MG, QD
     Route: 048
     Dates: start: 2000

REACTIONS (8)
  - Poverty of speech [Unknown]
  - Aggression [Unknown]
  - Dry mouth [Unknown]
  - Asthenia [Unknown]
  - Constipation [Unknown]
  - Mood swings [Unknown]
  - Decreased appetite [Unknown]
  - Discomfort [Unknown]

NARRATIVE: CASE EVENT DATE: 2019
